FAERS Safety Report 6081397-6 (Version None)
Quarter: 2009Q1

REPORT INFORMATION
  Report Type: 
  Country: None (occurrence: None)
  Receive Date: 20090213
  Receipt Date: 20090211
  Transmission Date: 20090719
  Serious: Yes (Hospitalization)
  Sender: FDA-Public Use
  Company Number: 2009SP003075

PATIENT
  Age: 81 Year
  Sex: Female
  Weight: 43 kg

DRUGS (6)
  1. TEMODAL [Suspect]
     Indication: CENTRAL NERVOUS SYSTEM LYMPHOMA
     Dosage: 210 MG; QD; PO
     Route: 048
     Dates: start: 20090123, end: 20090127
  2. TEMODAL [Suspect]
     Indication: CENTRAL NERVOUS SYSTEM LYMPHOMA
     Dosage: 210 MG; QD; PO
     Route: 048
     Dates: start: 20081130
  3. METHOTREXATE [Suspect]
     Indication: CENTRAL NERVOUS SYSTEM LYMPHOMA
     Dosage: 483 GM; QD; IV
     Route: 042
     Dates: start: 20081130, end: 20090123
  4. SOLU-MEDROL [Concomitant]
  5. NEUPOGEN [Concomitant]
  6. MEDROL [Concomitant]

REACTIONS (4)
  - ANAEMIA [None]
  - LUNG DISORDER [None]
  - PYREXIA [None]
  - THROMBOCYTOPENIA [None]
